FAERS Safety Report 16351588 (Version 7)
Quarter: 2020Q1

REPORT INFORMATION
  Report Type: Report from Study
  Country: CA (occurrence: CA)
  Receive Date: 20190524
  Receipt Date: 20200219
  Transmission Date: 20200409
  Serious: Yes (Other)
  Sender: FDA-Public Use
  Company Number: CA-ROCHE-1575363

PATIENT
  Age: 68 Year
  Sex: Male
  Weight: 80 kg

DRUGS (26)
  1. ACTEMRA [Suspect]
     Active Substance: TOCILIZUMAB
     Route: 042
     Dates: start: 20170507
  2. ACTEMRA [Suspect]
     Active Substance: TOCILIZUMAB
     Route: 042
     Dates: start: 20170117, end: 20171212
  3. METOPROLOL. [Concomitant]
     Active Substance: METOPROLOL
     Indication: PRODUCT USED FOR UNKNOWN INDICATION
     Route: 065
  4. ACTEMRA [Suspect]
     Active Substance: TOCILIZUMAB
     Route: 042
     Dates: start: 20150514, end: 20160510
  5. ACETYLSALICYLIC ACID [Concomitant]
     Active Substance: ASPIRIN
     Indication: PRODUCT USED FOR UNKNOWN INDICATION
     Route: 065
  6. RAMIPRIL. [Concomitant]
     Active Substance: RAMIPRIL
     Indication: PRODUCT USED FOR UNKNOWN INDICATION
  7. CALCIUM CARBONATE. [Concomitant]
     Active Substance: CALCIUM CARBONATE
     Indication: PRODUCT USED FOR UNKNOWN INDICATION
  8. NITROGLYCERIN. [Concomitant]
     Active Substance: NITROGLYCERIN
     Indication: PRODUCT USED FOR UNKNOWN INDICATION
     Dosage: NOT USED LATELT
     Route: 065
  9. ACTEMRA [Suspect]
     Active Substance: TOCILIZUMAB
     Indication: RHEUMATOID ARTHRITIS
     Dosage: ONGOING
     Route: 042
     Dates: start: 20150409, end: 20150409
  10. ACTEMRA [Suspect]
     Active Substance: TOCILIZUMAB
     Route: 042
     Dates: start: 20160607, end: 20161220
  11. IMURAN [Concomitant]
     Active Substance: AZATHIOPRINE
     Indication: PRODUCT USED FOR UNKNOWN INDICATION
     Route: 048
  12. CITALOPRAM [Concomitant]
     Active Substance: CITALOPRAM HYDROBROMIDE
     Indication: PRODUCT USED FOR UNKNOWN INDICATION
  13. SIMVASTATIN. [Concomitant]
     Active Substance: SIMVASTATIN
     Indication: PRODUCT USED FOR UNKNOWN INDICATION
  14. NAPROXEN. [Concomitant]
     Active Substance: NAPROXEN
     Indication: PRODUCT USED FOR UNKNOWN INDICATION
  15. SPIRIVA [Concomitant]
     Active Substance: TIOTROPIUM BROMIDE MONOHYDRATE
     Indication: PRODUCT USED FOR UNKNOWN INDICATION
  16. SALBUTAMOL [Concomitant]
     Active Substance: ALBUTEROL
     Indication: PRODUCT USED FOR UNKNOWN INDICATION
  17. ACTEMRA [Suspect]
     Active Substance: TOCILIZUMAB
     Route: 042
     Dates: start: 20180110
  18. TYLENOL [Concomitant]
     Active Substance: ACETAMINOPHEN
  19. FUCIDIN [FUSIDIC ACID] [Concomitant]
     Active Substance: FUSIDIC ACID
  20. CLOPIDOGREL [Concomitant]
     Active Substance: CLOPIDOGREL BISULFATE
     Indication: PRODUCT USED FOR UNKNOWN INDICATION
  21. PLAQUENIL [Concomitant]
     Active Substance: HYDROXYCHLOROQUINE SULFATE
     Indication: PRODUCT USED FOR UNKNOWN INDICATION
     Route: 048
  22. TYLENOL WITH CODEINE [Concomitant]
     Active Substance: ACETAMINOPHEN\CODEINE PHOSPHATE
     Indication: PRODUCT USED FOR UNKNOWN INDICATION
     Route: 065
  23. TOPICORTE [Concomitant]
     Active Substance: DESOXIMETASONE
     Dosage: TOPICAL FOOT CREAM
     Route: 065
  24. DOCUSATE SODIUM. [Concomitant]
     Active Substance: DOCUSATE SODIUM
     Indication: PRODUCT USED FOR UNKNOWN INDICATION
  25. MORPHINE [Concomitant]
     Active Substance: MORPHINE
     Indication: PRODUCT USED FOR UNKNOWN INDICATION
  26. CANDESARTAN. [Concomitant]
     Active Substance: CANDESARTAN
     Indication: PRODUCT USED FOR UNKNOWN INDICATION

REACTIONS (35)
  - Blood pressure diastolic decreased [Unknown]
  - Investigation abnormal [Recovering/Resolving]
  - Off label use [Unknown]
  - Cardiac disorder [Unknown]
  - Rash [Not Recovered/Not Resolved]
  - Oxygen saturation decreased [Unknown]
  - Infusion related reaction [Unknown]
  - Intentional product use issue [Unknown]
  - Blood pressure systolic increased [Unknown]
  - Musculoskeletal stiffness [Recovering/Resolving]
  - Wheezing [Unknown]
  - Cardiomegaly [Unknown]
  - Mouth injury [Recovering/Resolving]
  - Rash pruritic [Unknown]
  - Peripheral swelling [Not Recovered/Not Resolved]
  - Rash [Recovering/Resolving]
  - Alopecia [Unknown]
  - Weight decreased [Unknown]
  - Pneumonia [Recovering/Resolving]
  - Limb injury [Recovered/Resolved]
  - Dizziness [Unknown]
  - Blood pressure fluctuation [Unknown]
  - Lung disorder [Unknown]
  - Acne [Not Recovered/Not Resolved]
  - Hypertension [Unknown]
  - Pain [Recovering/Resolving]
  - Skin ulcer [Recovered/Resolved]
  - Weight increased [Unknown]
  - Abdominal pain [Recovering/Resolving]
  - Peripheral swelling [Recovering/Resolving]
  - Hypotension [Unknown]
  - Rhinorrhoea [Recovered/Resolved]
  - Dyspnoea [Unknown]
  - Left ventricular dysfunction [Unknown]
  - Urinary tract infection [Unknown]

NARRATIVE: CASE EVENT DATE: 201505
